FAERS Safety Report 7417279-4 (Version None)
Quarter: 2011Q2

REPORT INFORMATION
  Report Type: 
  Country: None (occurrence: None)
  Receive Date: 20110415
  Receipt Date: 20110413
  Transmission Date: 20111010
  Serious: Yes (Hospitalization)
  Sender: FDA-Public Use
  Company Number: US-BRISTOL-MYERS SQUIBB COMPANY-15235427

PATIENT
  Age: 54 Year
  Sex: Male

DRUGS (7)
  1. ASPIRIN [Concomitant]
  2. GLIPIZIDE [Concomitant]
  3. LEVOXYL [Concomitant]
  4. ONGLYZA [Suspect]
     Route: 048
     Dates: start: 20100426, end: 20100806
  5. PRAVACHOL [Concomitant]
  6. AVAPRO [Concomitant]
  7. GLUMETZA [Concomitant]

REACTIONS (1)
  - PANCREATITIS ACUTE [None]
